FAERS Safety Report 4694771-7 (Version None)
Quarter: 2005Q2

REPORT INFORMATION
  Report Type: 
  Country: None (occurrence: None)
  Receive Date: 20050620
  Receipt Date: 20050608
  Transmission Date: 20051028
  Serious: Yes (Hospitalization)
  Sender: FDA-Public Use
  Company Number: JP-BRISTOL-MYERS SQUIBB COMPANY-13005285

PATIENT
  Age: 45 Year
  Sex: Male

DRUGS (3)
  1. EFAVIRENZ CAPS [Suspect]
     Indication: ACQUIRED IMMUNODEFICIENCY SYNDROME
     Route: 048
     Dates: start: 20021101, end: 20030301
  2. LAMIVUDINE [Suspect]
     Indication: ACQUIRED IMMUNODEFICIENCY SYNDROME
     Route: 048
     Dates: start: 20021101, end: 20030301
  3. RETROVIR [Suspect]
     Indication: ACQUIRED IMMUNODEFICIENCY SYNDROME
     Route: 048
     Dates: start: 20021101, end: 20030301

REACTIONS (12)
  - BASEDOW'S DISEASE [None]
  - BLOOD THYROID STIMULATING HORMONE DECREASED [None]
  - DYSPNOEA [None]
  - GOITRE [None]
  - HYPERTHYROIDISM [None]
  - IMMUNE RECONSTITUTION SYNDROME [None]
  - LACTIC ACIDOSIS [None]
  - NAUSEA [None]
  - THYROXINE FREE INCREASED [None]
  - TREMOR [None]
  - TRI-IODOTHYRONINE FREE DECREASED [None]
  - VOMITING [None]
